FAERS Safety Report 19965270 (Version 3)
Quarter: 2022Q2

REPORT INFORMATION
  Report Type: Spontaneous
  Country: NP (occurrence: NP)
  Receive Date: 20211018
  Receipt Date: 20220531
  Transmission Date: 20220721
  Serious: Yes (Hospitalization, Other)
  Sender: FDA-Public Use
  Company Number: None

PATIENT
  Age: 26 Year
  Sex: Male

DRUGS (16)
  1. MORPHINE SULFATE [Suspect]
     Active Substance: MORPHINE SULFATE
     Indication: Sedation
     Dosage: UNKNOWN
     Route: 065
  2. MORPHINE SULFATE [Suspect]
     Active Substance: MORPHINE SULFATE
     Indication: General anaesthesia
     Dosage: 4 MG, UNK
     Route: 042
  3. MORPHINE SULFATE [Suspect]
     Active Substance: MORPHINE SULFATE
     Dosage: 4 MILLIGRAM, BOLUS
     Route: 040
  4. PROPOFOL [Suspect]
     Active Substance: PROPOFOL
     Indication: Sedation
     Dosage: INJECTION
     Route: 065
  5. PROPOFOL [Suspect]
     Active Substance: PROPOFOL
     Indication: General anaesthesia
     Dosage: 150 MG, UNK
     Route: 042
  6. PROPOFOL [Suspect]
     Active Substance: PROPOFOL
     Dosage: 100 MG, UNK
     Route: 040
  7. PROPOFOL [Suspect]
     Active Substance: PROPOFOL
     Dosage: 100 MILLIGRAM, BOLUS (AFTER 2 MINUTES AS MAINTENANCE)
     Route: 040
  8. PROPOFOL [Suspect]
     Active Substance: PROPOFOL
     Dosage: 150 MILLIGRAM, BOLUS (AT THE START OF THE SURGERY)
     Route: 042
  9. CEFAZOLIN [Concomitant]
     Active Substance: CEFAZOLIN
     Indication: Antibiotic prophylaxis
     Dosage: 2 G, UNK
     Route: 042
  10. CEFAZOLIN [Concomitant]
     Active Substance: CEFAZOLIN
     Dosage: 2 G, UNK
     Route: 042
  11. METRONIDAZOLE [Concomitant]
     Active Substance: METRONIDAZOLE
     Indication: Antibiotic prophylaxis
     Route: 042
  12. METRONIDAZOLE [Concomitant]
     Active Substance: METRONIDAZOLE
     Route: 042
  13. ACETAMINOPHEN [Concomitant]
     Active Substance: ACETAMINOPHEN
     Indication: Pain management
     Dosage: 1 G, UNK
     Route: 042
  14. ACETAMINOPHEN [Concomitant]
     Active Substance: ACETAMINOPHEN
     Dosage: 1 G, UNK
     Route: 042
  15. OXYGEN [Concomitant]
     Active Substance: OXYGEN
     Dosage: 6 L, MINUTE (VIA FACEMASK)
     Route: 055
  16. OXYGEN [Concomitant]
     Active Substance: OXYGEN
     Dosage: 6 L, MINUTE (VIA FACEMASK)
     Route: 055

REACTIONS (1)
  - Dysphemia [Recovered/Resolved]
